FAERS Safety Report 25628134 (Version 1)
Quarter: 2025Q3

REPORT INFORMATION
  Report Type: Spontaneous
  Country: JP (occurrence: JP)
  Receive Date: 20250731
  Receipt Date: 20250731
  Transmission Date: 20251020
  Serious: Yes (Life-Threatening, Hospitalization, Other)
  Sender: MERCK SHARP & DOHME LLC
  Company Number: JP-009507513-2282415

PATIENT
  Age: 56 Year
  Sex: Female
  Weight: 60.6 kg

DRUGS (2)
  1. KEYTRUDA [Suspect]
     Active Substance: PEMBROLIZUMAB
     Indication: Uterine cancer
     Dosage: 200 MG ONCE EVERY 3 WEEKS, 1 COURSE.
     Route: 041
     Dates: start: 20250418, end: 20250418
  2. LENVIMA [Suspect]
     Active Substance: LENVATINIB
     Indication: Uterine cancer
     Route: 048
     Dates: start: 20250418

REACTIONS (5)
  - Cytokine release syndrome [Recovering/Resolving]
  - Shock [Recovered/Resolved]
  - Hepatitis C [Unknown]
  - Hepatic cirrhosis [Unknown]
  - Liver disorder [Unknown]

NARRATIVE: CASE EVENT DATE: 20250101
